FAERS Safety Report 6765204-1 (Version None)
Quarter: 2010Q2

REPORT INFORMATION
  Report Type: 
  Country: None (occurrence: None)
  Receive Date: 20100610
  Receipt Date: 20100610
  Transmission Date: 20101027
  Serious: Yes (Life-Threatening, Hospitalization)
  Sender: FDA-Public Use
  Company Number: None

PATIENT
  Age: 26 Year
  Sex: Female
  Weight: 11.9 kg

DRUGS (1)
  1. CVS/PHARMACY BOTTLE UNKNOWN [Suspect]

REACTIONS (5)
  - ACCIDENTAL DRUG INTAKE BY CHILD [None]
  - DEVICE MALFUNCTION [None]
  - DYSSTASIA [None]
  - EYE ROLLING [None]
  - LETHARGY [None]
